FAERS Safety Report 5077276-3 (Version None)
Quarter: 2006Q3

REPORT INFORMATION
  Report Type: 
  Country: None (occurrence: None)
  Receive Date: 20060810
  Receipt Date: 20060115
  Transmission Date: 20061208
  Serious: No
  Sender: FDA-Public Use
  Company Number: US-GLAXOSMITHKLINE-A0589529A

PATIENT
  Sex: Female

DRUGS (3)
  1. PAROXETINE HCL [Suspect]
     Indication: DRUG USE FOR UNKNOWN INDICATION
  2. PAXIL [Concomitant]
  3. PAXIL CR [Concomitant]
     Route: 048

REACTIONS (3)
  - CRYING [None]
  - DEPRESSION [None]
  - DRUG INEFFECTIVE [None]
